FAERS Safety Report 24675658 (Version 2)
Quarter: 2024Q4

REPORT INFORMATION
  Report Type: Spontaneous
  Country: ES (occurrence: ES)
  Receive Date: 20241128
  Receipt Date: 20241204
  Transmission Date: 20250115
  Serious: Yes (Hospitalization)
  Sender: DAIICHI
  Company Number: ES-DSJP-DS-2024-109886-ES

PATIENT
  Age: 84 Year
  Sex: Male

DRUGS (6)
  1. EDOXABAN TOSYLATE [Suspect]
     Active Substance: EDOXABAN TOSYLATE
     Indication: Arrhythmia
     Dosage: 60 MG, QD
     Route: 065
  2. EDOXABAN TOSYLATE [Suspect]
     Active Substance: EDOXABAN TOSYLATE
     Dosage: UNK
     Route: 065
     Dates: start: 20241111
  3. TRIADE [Concomitant]
     Indication: Product used for unknown indication
     Dosage: UNK
     Route: 065
  4. CASENFIBRA [INULIN;MALTODEXTRIN] [Concomitant]
     Indication: Product used for unknown indication
     Dosage: UNK
     Route: 065
  5. ACETAMINOPHEN [Concomitant]
     Active Substance: ACETAMINOPHEN
     Indication: Back pain
     Dosage: 1 G
     Route: 065
  6. VOLTADOL [DICLOFENAC DIETHYLAMINE] [Concomitant]
     Indication: Product used for unknown indication
     Dosage: UNK
     Route: 065

REACTIONS (5)
  - Thrombophlebitis [Recovered/Resolved]
  - Rectal haemorrhage [Recovered/Resolved]
  - Diverticulitis [Unknown]
  - Haemorrhoids [Not Recovered/Not Resolved]
  - Faeces hard [Recovered/Resolved]

NARRATIVE: CASE EVENT DATE: 20240901
